FAERS Safety Report 6102529-7 (Version None)
Quarter: 2009Q1

REPORT INFORMATION
  Report Type: 
  Country: None (occurrence: None)
  Receive Date: 20090304
  Receipt Date: 20080722
  Transmission Date: 20090719
  Serious: No
  Sender: FDA-Public Use
  Company Number: A0739929A

PATIENT
  Sex: Female

DRUGS (1)
  1. REQUIP [Suspect]
     Indication: PARKINSON'S DISEASE
     Dosage: 1MG PER DAY
     Route: 048

REACTIONS (2)
  - SOMNOLENCE [None]
  - YAWNING [None]
